FAERS Safety Report 7522527-6 (Version None)
Quarter: 2011Q2

REPORT INFORMATION
  Report Type: 
  Country: None (occurrence: None)
  Receive Date: 20110525
  Receipt Date: 20110401
  Transmission Date: 20111010
  Serious: Yes (Death)
  Sender: FDA-Public Use
  Company Number: 201110590

PATIENT
  Age: 79 Year
  Sex: Male

DRUGS (3)
  1. LIORESAL [Suspect]
     Indication: MUSCLE SPASTICITY
     Dosage: MCG, DAILY, INTRATHECAL
     Route: 037
  2. DILAUDID [Concomitant]
  3. BUPIVACAINE HCL [Concomitant]

REACTIONS (3)
  - CONDITION AGGRAVATED [None]
  - METASTATIC NEOPLASM [None]
  - PRE-EXISTING DISEASE [None]
